FAERS Safety Report 5847267-0 (Version None)
Quarter: 2008Q3

REPORT INFORMATION
  Report Type: 
  Country: None (occurrence: None)
  Receive Date: 20080815
  Receipt Date: 20080807
  Transmission Date: 20090109
  Serious: Yes (Other)
  Sender: FDA-Public Use
  Company Number: FR-ABBOTT-08P-163-0436710-00

PATIENT
  Age: 44 Year
  Sex: Male

DRUGS (15)
  1. RITONAVIR SOFT GELATIN CAPSULES [Suspect]
     Indication: HIV INFECTION
     Route: 048
     Dates: start: 20051010, end: 20070827
  2. RITONAVIR SOFT GELATIN CAPSULES [Suspect]
     Dates: start: 20070827
  3. APTIVUS [Suspect]
     Indication: HIV INFECTION
     Route: 048
     Dates: start: 20051010, end: 20070827
  4. RALTEGRAVIR [Suspect]
     Indication: HIV INFECTION
     Dates: start: 20070627, end: 20070803
  5. RALTEGRAVIR [Suspect]
     Dates: start: 20071016
  6. TRIZIVIR [Concomitant]
     Indication: ANTIRETROVIRAL THERAPY
     Dates: start: 20051010
  7. TENOFOVIR DISOPROXIL FUMARATE [Concomitant]
     Indication: ANTIRETROVIRAL THERAPY
     Dates: start: 20051010
  8. ENFUVIRTIDE [Concomitant]
     Indication: ANTIRETROVIRAL THERAPY
     Dates: start: 20051010, end: 20070627
  9. ENFUVIRTIDE [Concomitant]
     Dates: start: 20070803
  10. ISENTRESS [Concomitant]
     Indication: DRUG USE FOR UNKNOWN INDICATION
     Dates: start: 20070627, end: 20070827
  11. BACTRIM [Concomitant]
     Indication: DRUG USE FOR UNKNOWN INDICATION
  12. VITAMIN E [Concomitant]
     Indication: DRUG USE FOR UNKNOWN INDICATION
  13. MANSERINE [Concomitant]
     Indication: DRUG USE FOR UNKNOWN INDICATION
  14. RITONAVIR [Concomitant]
     Indication: HIV INFECTION
     Dates: start: 20070827
  15. DARUNAVIR [Concomitant]
     Indication: HIV INFECTION
     Dates: start: 20070827

REACTIONS (4)
  - ALANINE AMINOTRANSFERASE INCREASED [None]
  - ASPARTATE AMINOTRANSFERASE INCREASED [None]
  - CYTOLYTIC HEPATITIS [None]
  - LIVER FUNCTION TEST ABNORMAL [None]
